FAERS Safety Report 14376372 (Version 1)
Quarter: 2018Q1

REPORT INFORMATION
  Report Type: Report from Study
  Country: US (occurrence: US)
  Receive Date: 20180111
  Receipt Date: 20180111
  Transmission Date: 20180509
  Serious: Yes (Hospitalization, Other)
  Sender: FDA-Public Use
  Company Number: US-BAYER-2017-029777

PATIENT
  Age: 56 Year
  Sex: Male

DRUGS (19)
  1. STIVARGA [Suspect]
     Active Substance: REGORAFENIB
     Indication: COLON CANCER
     Dosage: 160 MG DAILY ON LOW FAT BREAKFAST FOR THREE WEEKS THEN ONE WEEK OFF
     Route: 048
     Dates: start: 201701, end: 2017
  2. STIVARGA [Suspect]
     Active Substance: REGORAFENIB
     Indication: COLON CANCER
     Dosage: 160 MG DAILY ON LOW FAT BREAKFAST FOR THREE WEEKS THEN ONE WEEK OFF
     Route: 048
     Dates: start: 2017, end: 2017
  3. ARMOUR THYROID [Concomitant]
     Active Substance: THYROID, PORCINE
  4. ONDANSETRON HYDROCHLORIDE. [Concomitant]
     Active Substance: ONDANSETRON HYDROCHLORIDE
  5. SPIRONOLACTONE. [Concomitant]
     Active Substance: SPIRONOLACTONE
  6. LORAZEPAM. [Concomitant]
     Active Substance: LORAZEPAM
  7. LISINOPRIL. [Concomitant]
     Active Substance: LISINOPRIL
  8. STIVARGA [Suspect]
     Active Substance: REGORAFENIB
     Indication: COLON CANCER
     Dosage: DAILY DOSE 160 MG EVERY DAT WITH LOW FATBREAKFAST FOR THREE WEEKS, THEN ONE WEEK OFF
     Route: 048
     Dates: start: 2017, end: 2017
  9. STIVARGA [Suspect]
     Active Substance: REGORAFENIB
     Indication: COLON CANCER
     Dosage: 80 MG, QD, X3 WEEKS ON AND 1 WEEK OFF
     Dates: start: 2017, end: 2017
  10. DIPHENHYDRAMINE HYDROCHLORIDE. [Concomitant]
     Active Substance: DIPHENHYDRAMINE HYDROCHLORIDE
  11. PROCHLORPERAZINE MALEATE. [Concomitant]
     Active Substance: PROCHLORPERAZINE MALEATE
  12. DOXYCYCLINE HYCLATE. [Concomitant]
     Active Substance: DOXYCYCLINE HYCLATE
  13. DILTIAZEM HCL [Concomitant]
     Active Substance: DILTIAZEM HYDROCHLORIDE
  14. ZOLOFT [Concomitant]
     Active Substance: SERTRALINE HYDROCHLORIDE
  15. FOLBEE [CYANOCOBALAMIN,FOLIC ACID,PYRIDOXINE] [Concomitant]
  16. TAMSULOSIN HYDROCHLORIDE. [Concomitant]
     Active Substance: TAMSULOSIN HYDROCHLORIDE
  17. STIVARGA [Suspect]
     Active Substance: REGORAFENIB
     Indication: COLON CANCER
     Dosage: DAILY DOSE 160 MG EVERY DAT WITH LOW FATBREAKFAST FOR THREE WEEKS, THEN ONE WEEK OFF
     Route: 048
     Dates: start: 2017
  18. METFORMIN HCL [Concomitant]
     Active Substance: METFORMIN HYDROCHLORIDE
  19. ATORVASTATIN CALCIUM. [Concomitant]
     Active Substance: ATORVASTATIN CALCIUM

REACTIONS (15)
  - Nausea [Recovered/Resolved]
  - Hypoaesthesia [Unknown]
  - Diarrhoea [Recovering/Resolving]
  - Pneumonia [None]
  - Fatigue [Recovered/Resolved]
  - Lethargy [Unknown]
  - Hypertension [Unknown]
  - Rash [Unknown]
  - Nausea [Recovering/Resolving]
  - Diarrhoea [Recovered/Resolved]
  - Pneumonia [Recovered/Resolved]
  - Urinary incontinence [Not Recovered/Not Resolved]
  - Cough [Recovered/Resolved]
  - Dehydration [None]
  - Incorrect dosage administered [None]

NARRATIVE: CASE EVENT DATE: 201702
